FAERS Safety Report 4926817-2 (Version None)
Quarter: 2006Q1

REPORT INFORMATION
  Report Type: 
  Country: None (occurrence: None)
  Receive Date: 20060228
  Receipt Date: 20050622
  Transmission Date: 20060701
  Serious: No
  Sender: FDA-Public Use
  Company Number: US-GLAXOSMITHKLINE-A0563826A

PATIENT
  Age: 22 Year
  Sex: Female
  Weight: 50 kg

DRUGS (5)
  1. LAMICTAL [Suspect]
     Indication: BIPOLAR DISORDER
     Dosage: 150MG PER DAY
     Route: 048
     Dates: start: 20050201
  2. ZOLOFT [Concomitant]
     Dosage: 75MG TWICE PER DAY
     Route: 048
     Dates: start: 20020101
  3. ADDERALL XR 10 [Concomitant]
     Dosage: 20MG PER DAY
     Route: 048
     Dates: start: 20020101
  4. SEROQUEL [Concomitant]
     Dosage: 25MG AT NIGHT
     Route: 048
     Dates: start: 20040101
  5. LITHIUM [Concomitant]
     Dates: start: 20030101

REACTIONS (1)
  - PRURITUS [None]
